FAERS Safety Report 5999669-X (Version None)
Quarter: 2008Q4

REPORT INFORMATION
  Report Type: 
  Country: None (occurrence: None)
  Receive Date: 20081215
  Receipt Date: 20081203
  Transmission Date: 20090506
  Serious: Yes (Other)
  Sender: FDA-Public Use
  Company Number: US-ROCHE-527486

PATIENT
  Sex: Male
  Weight: 78.9 kg

DRUGS (3)
  1. ACCUTANE [Suspect]
     Indication: ACNE
     Dosage: PATIENT TOOK SEVERAL COURSES DURING THE TIME FRAME.
     Route: 065
     Dates: start: 19900101, end: 19980101
  2. ACCUTANE [Suspect]
     Route: 065
     Dates: start: 20000102, end: 20001202
  3. ACCUTANE [Suspect]
     Route: 065
     Dates: start: 20010806, end: 20020527

REACTIONS (34)
  - ABDOMINAL PAIN [None]
  - ANAL FISSURE [None]
  - ANGER [None]
  - ANXIETY [None]
  - ARTHRALGIA [None]
  - ARTHRITIS [None]
  - BACK PAIN [None]
  - BALANITIS [None]
  - BLOOD TRIGLYCERIDES INCREASED [None]
  - BRONCHITIS [None]
  - COLITIS [None]
  - COLITIS ULCERATIVE [None]
  - COLONIC POLYP [None]
  - CONSTIPATION [None]
  - CROHN'S DISEASE [None]
  - DEPRESSION [None]
  - DYSURIA [None]
  - EAR INFECTION [None]
  - FEAR [None]
  - GASTROINTESTINAL DISORDER [None]
  - HAEMATOCHEZIA [None]
  - HAEMORRHOIDS [None]
  - HERNIA [None]
  - INFLAMMATORY BOWEL DISEASE [None]
  - IRRITABLE BOWEL SYNDROME [None]
  - LOWER GASTROINTESTINAL HAEMORRHAGE [None]
  - MOLLUSCUM CONTAGIOSUM [None]
  - MOOD SWINGS [None]
  - PROCTALGIA [None]
  - RECTAL HAEMORRHAGE [None]
  - SEXUAL DYSFUNCTION [None]
  - STRESS [None]
  - SUICIDAL IDEATION [None]
  - TENDONITIS [None]
